FAERS Safety Report 6154381-1 (Version None)
Quarter: 2009Q2

REPORT INFORMATION
  Report Type: 
  Country: None (occurrence: None)
  Receive Date: 20090414
  Receipt Date: 20090407
  Transmission Date: 20091009
  Serious: Yes (Other)
  Sender: FDA-Public Use
  Company Number: US-ASTRAZENECA-2009UW08741

PATIENT
  Age: 73 Year
  Sex: Female
  Weight: 56.7 kg

DRUGS (6)
  1. PRILOSEC [Suspect]
     Indication: GASTROOESOPHAGEAL REFLUX DISEASE
     Route: 048
     Dates: start: 20020401, end: 20040401
  2. THYROID TAB [Concomitant]
  3. HIGH BLOOD PRESSURE MEDICATION [Concomitant]
     Indication: BLOOD PRESSURE
  4. MULTI-VITAMIN [Concomitant]
  5. HERBAL SUPPLEMENTS [Concomitant]
  6. CALCIUM SUPPLEMENTS [Concomitant]

REACTIONS (1)
  - BARRETT'S OESOPHAGUS [None]
